FAERS Safety Report 10921283 (Version 3)
Quarter: 2015Q2

REPORT INFORMATION
  Report Type: Spontaneous
  Country: JP (occurrence: None)
  Receive Date: 20150312
  Receipt Date: 20150403
  Transmission Date: 20150821
  Serious: Yes (Other)
  Sender: FDA-Public Use
  Company Number: 2015BCR00090

PATIENT
  Age: 62 Year
  Sex: Male

DRUGS (5)
  1. NATRIX (INDAPAMIDE) [Concomitant]
  2. RAPIACTA [Suspect]
     Active Substance: PERAMIVIR
     Indication: INFLUENZA
     Route: 042
     Dates: start: 20150117, end: 20150117
  3. CARDENALIN (DOXAZOSIN MESILATE) [Concomitant]
  4. SYMBICORT (BUDESONIDE/FORMOTEROL FUMARATE HYDRATE) [Concomitant]
  5. AIMIX (IRBESARTAN/AMLODIPINE BESILATE COMBINED DRUG) [Concomitant]

REACTIONS (8)
  - Oxygen saturation decreased [None]
  - Vomiting [None]
  - Dyspnoea [None]
  - Nausea [None]
  - Feeling abnormal [None]
  - Blood pressure increased [None]
  - Chest discomfort [None]
  - Shock [None]

NARRATIVE: CASE EVENT DATE: 20150117
